FAERS Safety Report 11491624 (Version 1)
Quarter: 2015Q3

REPORT INFORMATION
  Report Type: Report from Study
  Country: US (occurrence: US)
  Receive Date: 20150910
  Receipt Date: 20150910
  Transmission Date: 20151125
  Serious: Yes (Other)
  Sender: FDA-Public Use
  Company Number: PHEH2014US016830

PATIENT
  Sex: Female
  Weight: 74.83 kg

DRUGS (4)
  1. GILENYA [Suspect]
     Active Substance: FINGOLIMOD HYDROCHLORIDE
     Indication: MULTIPLE SCLEROSIS
     Dosage: 0.5 MG, QD
     Route: 048
     Dates: start: 20130814
  2. CELEXA [Concomitant]
     Active Substance: CITALOPRAM HYDROBROMIDE
     Indication: PRODUCT USED FOR UNKNOWN INDICATION
     Route: 065
  3. NAPROSYN [Concomitant]
     Active Substance: NAPROXEN
     Indication: PRODUCT USED FOR UNKNOWN INDICATION
     Dosage: 550 MG, BID
     Route: 065
  4. LAMICTAL [Concomitant]
     Active Substance: LAMOTRIGINE
     Indication: SEIZURE
     Dosage: 100 MG, BID
     Route: 048

REACTIONS (15)
  - Lumbar spinal stenosis [Unknown]
  - Musculoskeletal stiffness [Recovering/Resolving]
  - Hypoaesthesia [Recovering/Resolving]
  - Back pain [Unknown]
  - White blood cell count decreased [Unknown]
  - Restless legs syndrome [Unknown]
  - Paraesthesia [Recovering/Resolving]
  - Spinal meningeal cyst [Unknown]
  - Intervertebral disc space narrowing [Unknown]
  - Balance disorder [Recovering/Resolving]
  - Asthenia [Recovering/Resolving]
  - Lumbar radiculopathy [Unknown]
  - White matter lesion [Unknown]
  - Myofascial pain syndrome [Unknown]
  - Facet joint syndrome [Unknown]
